FAERS Safety Report 6113468 (Version 3)
Quarter: 2017Q1

REPORT INFORMATION
  Report Type: Spontaneous
  Country: PL (occurrence: PL)
  Receive Date: 20060823
  Receipt Date: 20170208
  Transmission Date: 20170429
  Serious: Yes (Other)
  Sender: FDA-Public Use
  Company Number: PHBS2006PL12192

PATIENT
  Age: 56 Year
  Sex: Male

DRUGS (6)
  1. ZOLEDRONIC ACID [Suspect]
     Active Substance: ZOLEDRONIC ACID
     Indication: PLASMA CELL MYELOMA
     Dosage: 8 MG, QMO (18 CYCLES)
     Route: 042
  2. MELPHALAN [Concomitant]
     Active Substance: MELPHALAN
     Indication: PLASMA CELL MYELOMA
     Dosage: UNK
     Route: 065
     Dates: end: 200509
  3. ADRIAMYCINE + VINCRISTINE [Concomitant]
     Indication: PLASMA CELL MYELOMA
     Dosage: UNK
     Route: 065
     Dates: start: 1999, end: 2000
  4. CARMUSTINE [Concomitant]
     Active Substance: CARMUSTINE
     Indication: PLASMA CELL MYELOMA
     Dosage: UNK
     Route: 065
     Dates: start: 1999, end: 2000
  5. CYCLOPHOSPHAMIDE W/VINCRISTINE/PREDNISONE [Concomitant]
     Active Substance: CYCLOPHOSPHAMIDE\PREDNISONE\VINCRISTINE
     Indication: PLASMA CELL MYELOMA
     Dosage: UNK
     Route: 065
     Dates: start: 1999, end: 2000
  6. PREDNISONE. [Concomitant]
     Active Substance: PREDNISONE
     Indication: PLASMA CELL MYELOMA
     Dosage: UNK
     Route: 065
     Dates: start: 1999, end: 2000

REACTIONS (10)
  - Escherichia infection [Unknown]
  - Osteonecrosis of jaw [Unknown]
  - Staphylococcal infection [Unknown]
  - Gingival disorder [Unknown]
  - Osteolysis [Unknown]
  - Jaw fracture [Unknown]
  - Fistula [Unknown]
  - Exposed bone in jaw [Unknown]
  - Streptococcal infection [Unknown]
  - Morganella infection [Unknown]
